FAERS Safety Report 15645838 (Version 1)
Quarter: 2018Q4

REPORT INFORMATION
  Report Type: Report from Study
  Country: BR (occurrence: BR)
  Receive Date: 20181121
  Receipt Date: 20181121
  Transmission Date: 20190205
  Serious: Yes (Other)
  Sender: FDA-Public Use
  Company Number: PHHY2018BR160045

PATIENT
  Age: 64 Year
  Sex: Male

DRUGS (3)
  1. RIVOTRIL [Concomitant]
     Active Substance: CLONAZEPAM
     Indication: PRODUCT USED FOR UNKNOWN INDICATION
     Dosage: 2 MG, UNK
     Route: 065
  2. TEGRETOL [Suspect]
     Active Substance: CARBAMAZEPINE
     Indication: SEIZURE
     Dosage: 400 MG, UNK
     Route: 065
  3. GARDENAL [Concomitant]
     Active Substance: PHENOBARBITAL
     Indication: PRODUCT USED FOR UNKNOWN INDICATION
     Dosage: 100 MG, UNK
     Route: 065

REACTIONS (11)
  - Upper limb fracture [Unknown]
  - Moaning [Unknown]
  - Nervousness [Unknown]
  - Fear [Unknown]
  - Ill-defined disorder [Unknown]
  - General physical health deterioration [Unknown]
  - Asthenia [Unknown]
  - Visual impairment [Unknown]
  - Fall [Unknown]
  - Spinal fracture [Unknown]
  - Malaise [Unknown]

NARRATIVE: CASE EVENT DATE: 20180915
